FAERS Safety Report 6363368-5 (Version None)
Quarter: 2009Q3

REPORT INFORMATION
  Report Type: 
  Country: None (occurrence: None)
  Receive Date: 20090919
  Receipt Date: 20090629
  Transmission Date: 20100115
  Serious: Yes (Hospitalization)
  Sender: FDA-Public Use
  Company Number: US-ABBOTT-09P-163-0582383-00

PATIENT
  Weight: 82.174 kg

DRUGS (13)
  1. HUMIRA [Suspect]
     Indication: RHEUMATOID ARTHRITIS
     Dates: start: 20080101, end: 20090101
  2. HUMIRA [Suspect]
     Indication: ANKYLOSING SPONDYLITIS
  3. FLOMAX [Concomitant]
     Indication: URINARY TRACT DISORDER
  4. MIRAPEX [Concomitant]
     Indication: DRUG USE FOR UNKNOWN INDICATION
  5. METOPROLOL TARTRATE [Concomitant]
     Indication: HYPERTENSION
  6. NIFEDIPINE [Concomitant]
     Indication: DRUG USE FOR UNKNOWN INDICATION
  7. GABAPENTIN [Concomitant]
     Indication: DRUG USE FOR UNKNOWN INDICATION
  8. PRIMIDONE [Concomitant]
     Indication: DRUG USE FOR UNKNOWN INDICATION
  9. PANTOPRAZOLE SODIUM [Concomitant]
     Indication: DRUG USE FOR UNKNOWN INDICATION
  10. MELOXICAM [Concomitant]
     Indication: DRUG USE FOR UNKNOWN INDICATION
  11. LIPITOR [Concomitant]
     Indication: BLOOD CHOLESTEROL INCREASED
  12. REN-VITE [Concomitant]
     Indication: ROUTINE HEALTH MAINTENANCE
  13. BENICAR [Concomitant]
     Indication: HYPERTENSION

REACTIONS (8)
  - CONTUSION [None]
  - DIZZINESS [None]
  - EYE PAIN [None]
  - FALL [None]
  - FEELING JITTERY [None]
  - INJURY [None]
  - MUSCULOSKELETAL DISCOMFORT [None]
  - PNEUMONIA [None]
